FAERS Safety Report 16625723 (Version 10)
Quarter: 2021Q3

REPORT INFORMATION
  Report Type: Report from Study
  Country: None (occurrence: NL)
  Receive Date: 20190724
  Receipt Date: 20210811
  Transmission Date: 20211014
  Serious: Yes (Hospitalization, Other)
  Sender: FDA-Public Use
  Company Number: NL-ABBVIE-17K-114-2032238-00

PATIENT
  Age: 63 Year
  Sex: Male
  Weight: 71 kg

DRUGS (7)
  1. DUODOPA [Suspect]
     Active Substance: CARBIDOPA\LEVODOPA
     Indication: PARKINSON^S DISEASE
     Dosage: MD: 7.0 CD:3.2 ED: 1.0
     Route: 050
     Dates: start: 20170616
  2. DUODOPA [Suspect]
     Active Substance: CARBIDOPA\LEVODOPA
     Route: 050
  3. DUODOPA [Suspect]
     Active Substance: CARBIDOPA\LEVODOPA
     Dosage: MD 7.0, CD 3.4, ED 1.5
     Route: 050
  4. DUODOPA [Suspect]
     Active Substance: CARBIDOPA\LEVODOPA
     Dosage: MD 7.0 ML CD 3.6 ML/H ED 1.5 ML
     Route: 050
  5. DUODOPA [Suspect]
     Active Substance: CARBIDOPA\LEVODOPA
     Dosage: MD: 7.0, CD: 3.2, ED: 1.0
     Route: 050
  6. MOVICOLON [Concomitant]
     Active Substance: POLYETHYLENE GLYCOL 3350\POTASSIUM CHLORIDE\SODIUM BICARBONATE\SODIUM CHLORIDE
     Indication: DYSCHEZIA
     Dosage: DAILY, UNKNOWN FREQUENCY
     Route: 048
  7. DUODOPA [Suspect]
     Active Substance: CARBIDOPA\LEVODOPA
     Dosage: MD: 7.0, CD: 3.2, ED: 1.0?16 HOUR ADMINISTRATION
     Route: 050

REACTIONS (56)
  - Spinal disorder [Not Recovered/Not Resolved]
  - COVID-19 [Recovered/Resolved with Sequelae]
  - Back disorder [Recovered/Resolved]
  - Musculoskeletal stiffness [Not Recovered/Not Resolved]
  - Balance disorder [Unknown]
  - Stoma site erythema [Recovered/Resolved]
  - Middle insomnia [Recovered/Resolved]
  - Restlessness [Recovered/Resolved]
  - Dyskinesia [Recovering/Resolving]
  - Tremor [Not Recovered/Not Resolved]
  - Stoma site haemorrhage [Recovered/Resolved]
  - Flatulence [Not Recovered/Not Resolved]
  - Stoma site hypergranulation [Unknown]
  - Unevaluable event [Recovered/Resolved]
  - Sleep disorder [Recovered/Resolved]
  - Device material issue [Unknown]
  - Procedural pain [Not Recovered/Not Resolved]
  - Musculoskeletal pain [Not Recovered/Not Resolved]
  - Mobility decreased [Not Recovered/Not Resolved]
  - Stoma site discharge [Recovered/Resolved]
  - Memory impairment [Recovered/Resolved]
  - Impaired quality of life [Unknown]
  - Disturbance in attention [Not Recovered/Not Resolved]
  - Tension [Not Recovered/Not Resolved]
  - Abnormal dreams [Recovered/Resolved]
  - Hypokinesia [Not Recovered/Not Resolved]
  - Freezing phenomenon [Not Recovered/Not Resolved]
  - Therapeutic product effect variable [Recovered/Resolved]
  - Pain in extremity [Not Recovered/Not Resolved]
  - Speech disorder [Not Recovered/Not Resolved]
  - Hallucination, auditory [Not Recovered/Not Resolved]
  - Dyskinesia [Recovered/Resolved]
  - Stoma site discharge [Recovered/Resolved]
  - Abnormal dreams [Not Recovered/Not Resolved]
  - Stoma site discharge [Recovering/Resolving]
  - Device issue [Unknown]
  - Fibroma [Not Recovered/Not Resolved]
  - Fall [Not Recovered/Not Resolved]
  - Muscle rigidity [Not Recovered/Not Resolved]
  - Stoma site discomfort [Recovered/Resolved]
  - Hypertension [Not Recovered/Not Resolved]
  - Abdominal distension [Not Recovered/Not Resolved]
  - Dyskinesia [Recovered/Resolved]
  - Parkinson^s disease [Not Recovered/Not Resolved]
  - Stoma site haemorrhage [Recovered/Resolved]
  - Fatigue [Not Recovered/Not Resolved]
  - Back disorder [Not Recovered/Not Resolved]
  - Underweight [Recovered/Resolved]
  - Gait disturbance [Not Recovered/Not Resolved]
  - Hallucination [Not Recovered/Not Resolved]
  - Stoma site discharge [Not Recovered/Not Resolved]
  - Bradykinesia [Not Recovered/Not Resolved]
  - On and off phenomenon [Recovered/Resolved]
  - Hallucination [Recovered/Resolved]
  - On and off phenomenon [Not Recovered/Not Resolved]
  - Product administration error [Recovered/Resolved]

NARRATIVE: CASE EVENT DATE: 201706
